FAERS Safety Report 20830600 (Version 16)
Quarter: 2024Q4

REPORT INFORMATION
  Report Type: Report from Study
  Country: IT (occurrence: IT)
  Receive Date: 20220514
  Receipt Date: 20241230
  Transmission Date: 20250115
  Serious: Yes (Hospitalization, Other)
  Sender: TAKEDA
  Company Number: IT-TAKEDA-2021TUS026279

PATIENT
  Age: 66 Year
  Sex: Female

DRUGS (10)
  1. TEDUGLUTIDE [Suspect]
     Active Substance: TEDUGLUTIDE
     Indication: Short-bowel syndrome
     Dosage: 0.05 MILLIGRAM, QD
     Dates: start: 20210116
  2. TEDUGLUTIDE [Suspect]
     Active Substance: TEDUGLUTIDE
     Dosage: 0.3 MILLILITER, QD
     Dates: start: 20210420
  3. TEDUGLUTIDE [Suspect]
     Active Substance: TEDUGLUTIDE
     Dosage: 0.3 MILLILITER, QD
  4. TEDUGLUTIDE [Suspect]
     Active Substance: TEDUGLUTIDE
     Dosage: 0.3 MILLILITER, QD
  5. TEDUGLUTIDE [Suspect]
     Active Substance: TEDUGLUTIDE
     Dosage: 0.25 MILLILITER, QD
  6. TEDUGLUTIDE [Suspect]
     Active Substance: TEDUGLUTIDE
     Dosage: 0.25 MILLILITER, QD
  7. TEDUGLUTIDE [Suspect]
     Active Substance: TEDUGLUTIDE
     Dosage: 0.25 MILLILITER, QD
  8. TEDUGLUTIDE [Suspect]
     Active Substance: TEDUGLUTIDE
     Dosage: 0.25 MILLILITER, QD
  9. TEDUGLUTIDE [Suspect]
     Active Substance: TEDUGLUTIDE
     Dosage: 0.15 MILLILITER, QD
  10. TEDUGLUTIDE [Suspect]
     Active Substance: TEDUGLUTIDE
     Dosage: 0.15 MILLILITER, QD

REACTIONS (20)
  - Obstruction [Recovering/Resolving]
  - Pancreatic disorder [Recovering/Resolving]
  - Intestinal obstruction [Recovered/Resolved]
  - Product distribution issue [Not Recovered/Not Resolved]
  - Product use issue [Not Recovered/Not Resolved]
  - Migraine [Recovered/Resolved]
  - Blood fibrinogen abnormal [Not Recovered/Not Resolved]
  - Proteus test positive [Recovering/Resolving]
  - C-reactive protein abnormal [Not Recovered/Not Resolved]
  - Diarrhoea [Recovered/Resolved]
  - Renal pain [Recovering/Resolving]
  - Abdominal pain [Recovering/Resolving]
  - Fistula [Unknown]
  - Gastrointestinal sounds abnormal [Recovering/Resolving]
  - Abnormal faeces [Recovering/Resolving]
  - Osteoporosis [Recovering/Resolving]
  - Malnutrition [Not Recovered/Not Resolved]
  - Urinary tract infection [Recovering/Resolving]
  - Frequent bowel movements [Recovered/Resolved]
  - Depression [Recovered/Resolved]

NARRATIVE: CASE EVENT DATE: 20210420
